FAERS Safety Report 5920857-2 (Version None)
Quarter: 2008Q4

REPORT INFORMATION
  Report Type: 
  Country: None (occurrence: None)
  Receive Date: 20081016
  Receipt Date: 20081008
  Transmission Date: 20090506
  Serious: Yes (Other)
  Sender: FDA-Public Use
  Company Number: JP-WYE-H06385608

PATIENT
  Sex: Female

DRUGS (5)
  1. HYPEN [Suspect]
     Indication: PAIN IN EXTREMITY
     Route: 048
     Dates: start: 20080910, end: 20080910
  2. ELCATONIN [Concomitant]
     Dosage: UNSPECIFIED
     Route: 030
     Dates: start: 19960101
  3. AMLODIPINE BESYLATE [Concomitant]
     Indication: HYPERTENSION
     Dosage: UNSPECIFIED
     Route: 048
  4. MISOPROSTOL [Suspect]
     Indication: GASTRIC MUCOSAL LESION
     Dosage: UNSPECIFIED
     Route: 048
     Dates: start: 20080910, end: 20080910
  5. LIMAPROST [Concomitant]
     Indication: PAIN IN EXTREMITY
     Dosage: UNSPECIFIED
     Route: 048
     Dates: start: 20080808

REACTIONS (2)
  - CONVULSION [None]
  - PRURITUS GENERALISED [None]
